FAERS Safety Report 9842835 (Version 2)
Quarter: 2014Q1

REPORT INFORMATION
  Report Type: Spontaneous
  Country: GB (occurrence: GB)
  Receive Date: 20140124
  Receipt Date: 20140226
  Transmission Date: 20141002
  Serious: Yes (Other)
  Sender: FDA-Public Use
  Company Number: CHPA2014GB001187

PATIENT
  Sex: Female

DRUGS (1)
  1. OTRIVINE ADULT MEASURED DOSE SINUSITIS SPRAY [Suspect]
     Dosage: UNK, UNK

REACTIONS (5)
  - Sinusitis [Unknown]
  - Rhinorrhoea [Unknown]
  - Influenza like illness [Unknown]
  - Cough [Unknown]
  - Headache [Unknown]
